FAERS Safety Report 5328825-9 (Version None)
Quarter: 2007Q2

REPORT INFORMATION
  Report Type: 
  Country: None (occurrence: None)
  Receive Date: 20070518
  Receipt Date: 20070508
  Transmission Date: 20071010
  Serious: Yes (Other)
  Sender: FDA-Public Use
  Company Number: PHHO2007JP07894

PATIENT
  Age: 70 Year
  Sex: Male

DRUGS (7)
  1. ZOMETA [Suspect]
     Indication: HYPERCALCAEMIA OF MALIGNANCY
     Dosage: 4 MG, UNK
     Route: 042
     Dates: start: 20060912
  2. ALKERAN [Suspect]
     Dosage: 14 MG, UNK
     Route: 048
     Dates: start: 20060915
  3. ASPARA-CA [Concomitant]
     Dates: start: 20060915, end: 20060919
  4. ALFAROL [Concomitant]
     Dates: start: 20060915, end: 20060919
  5. PREDONINE [Concomitant]
     Dates: start: 20060915, end: 20060919
  6. GASTER D [Concomitant]
     Dates: start: 20060915, end: 20060919
  7. MUCOSTA [Concomitant]
     Dates: start: 20060915, end: 20060919

REACTIONS (6)
  - ANAEMIA [None]
  - HYPOCALCAEMIA [None]
  - HYPOPROTEINAEMIA [None]
  - RASH [None]
  - THROMBOCYTOPENIA [None]
  - WHITE BLOOD CELL COUNT DECREASED [None]
